FAERS Safety Report 17528799 (Version 1)
Quarter: 2020Q1

REPORT INFORMATION
  Report Type: Spontaneous
  Country: GB (occurrence: GB)
  Receive Date: 20200311
  Receipt Date: 20200311
  Transmission Date: 20200409
  Serious: Yes (Death)
  Sender: FDA-Public Use
  Company Number: GB-MYLANLABS-2020M1020939

PATIENT
  Age: 55 Year
  Sex: Male
  Weight: 87 kg

DRUGS (3)
  1. RANITIDINE. [Suspect]
     Active Substance: RANITIDINE
     Dosage: UNK
     Route: 065
  2. ALBUREX [Suspect]
     Active Substance: ALBUMIN HUMAN
     Indication: HYPOTENSION
     Dosage: 400
     Route: 042
     Dates: start: 20190801, end: 20190802
  3. RANITIDINE. [Suspect]
     Active Substance: RANITIDINE
     Indication: HERNIA
     Dosage: 50 MILLIGRAM
     Route: 065

REACTIONS (6)
  - Periorbital swelling [Fatal]
  - Dyspnoea [Fatal]
  - Cardiac arrest [Fatal]
  - Swollen tongue [Fatal]
  - Pruritus [Fatal]
  - Anaphylactic reaction [Fatal]

NARRATIVE: CASE EVENT DATE: 20190801
